FAERS Safety Report 10917265 (Version 1)
Quarter: 2015Q1

REPORT INFORMATION
  Report Type: Spontaneous
  Country: AU (occurrence: None)
  Receive Date: 20150311
  Receipt Date: 20150311
  Transmission Date: 20150721
  Serious: Yes (Life-Threatening, Hospitalization)
  Sender: FDA-Public Use
  Company Number: FK201501089

PATIENT
  Sex: Female

DRUGS (1)
  1. CARBOPLATIN INJECTION 10MG/ML (CARBOPLATIN USP) (CARBOPLATIN USP) [Suspect]
     Active Substance: CARBOPLATIN
     Indication: PRODUCT USED FOR UNKNOWN INDICATION
     Dosage: INTRAVENOUS (NOT OTHERWISE SPECIFIED)?
     Route: 042
     Dates: start: 20150220

REACTIONS (3)
  - Cardiac arrest [None]
  - Swelling [None]
  - Respiratory disorder [None]

NARRATIVE: CASE EVENT DATE: 20150220
